FAERS Safety Report 13176207 (Version 1)
Quarter: 2017Q1

REPORT INFORMATION
  Report Type: Spontaneous
  Country: US (occurrence: US)
  Receive Date: 20170201
  Receipt Date: 20170201
  Transmission Date: 20170428
  Serious: Yes (Hospitalization)
  Sender: FDA-Public Use
  Company Number: US-BEH-2017077620

PATIENT
  Age: 66 Year
  Sex: Female
  Weight: 86.17 kg

DRUGS (29)
  1. LMX                                /00033401/ [Concomitant]
  2. WELCHOL [Concomitant]
     Active Substance: COLESEVELAM HYDROCHLORIDE
  3. LEVOTHYROXINE. [Concomitant]
     Active Substance: LEVOTHYROXINE
  4. CLONIDINE. [Concomitant]
     Active Substance: CLONIDINE
  5. METOPROLOL. [Concomitant]
     Active Substance: METOPROLOL
  6. PIOGLITAZONE. [Concomitant]
     Active Substance: PIOGLITAZONE
  7. VENTOLIN [Concomitant]
     Active Substance: ALBUTEROL SULFATE
  8. SINGULAIR [Concomitant]
     Active Substance: MONTELUKAST SODIUM
  9. HIZENTRA [Suspect]
     Active Substance: HUMAN IMMUNOGLOBULIN G
     Indication: IMMUNODEFICIENCY COMMON VARIABLE
     Dosage: 8 G, QW
     Route: 058
     Dates: start: 20110208
  10. ACTOS [Concomitant]
     Active Substance: PIOGLITAZONE HYDROCHLORIDE
  11. NIACIN. [Concomitant]
     Active Substance: NIACIN
  12. VITAMIN B COMPLEX [Concomitant]
     Active Substance: CYANOCOBALAMIN\DEXPANTHENOL\NIACINAMIDE\PYRIDOXINE HYDROCHLORIDE\RIBOFLAVIN 5^-PHOSPHATE SODIUM\THIAMINE HYDROCHLORIDE\VITAMIN B COMPLEX
  13. OXYBUTYNIN [Concomitant]
     Active Substance: OXYBUTYNIN
  14. IBUPROFEN. [Concomitant]
     Active Substance: IBUPROFEN
  15. VITAMIN D                          /00107901/ [Concomitant]
     Active Substance: ERGOCALCIFEROL
  16. METFORMIN [Concomitant]
     Active Substance: METFORMIN HYDROCHLORIDE
  17. VITAMIN E                          /00110501/ [Concomitant]
     Active Substance: TOCOPHEROL
  18. GENTEAL                            /00445101/ [Concomitant]
     Active Substance: HYPROMELLOSE 2910 (4000 MPA.S)
  19. DIPHENHYDRAMINE. [Concomitant]
     Active Substance: DIPHENHYDRAMINE
  20. CALCIUM [Concomitant]
     Active Substance: CALCIUM
  21. CLARITIN [Concomitant]
     Active Substance: LORATADINE
  22. NEXIUM [Concomitant]
     Active Substance: ESOMEPRAZOLE MAGNESIUM
  23. LOSARTAN. [Concomitant]
     Active Substance: LOSARTAN
  24. ZETIA [Concomitant]
     Active Substance: EZETIMIBE
  25. DAILY MULTIVITAMIN [Concomitant]
     Active Substance: VITAMINS
  26. SUCRALFATE. [Concomitant]
     Active Substance: SUCRALFATE
  27. EPIPEN [Concomitant]
     Active Substance: EPINEPHRINE
  28. WELLBUTRIN [Concomitant]
     Active Substance: BUPROPION HYDROCHLORIDE
  29. VAGIFEM [Concomitant]
     Active Substance: ESTRADIOL

REACTIONS (1)
  - Coronary artery bypass [Unknown]

NARRATIVE: CASE EVENT DATE: 20161226
